FAERS Safety Report 8470635-8 (Version None)
Quarter: 2012Q2

REPORT INFORMATION
  Report Type: 
  Country: None (occurrence: None)
  Receive Date: 20120627
  Receipt Date: 20120613
  Transmission Date: 20120825
  Serious: Yes (Hospitalization)
  Sender: FDA-Public Use
  Company Number: JP-UCBSA-054295

PATIENT
  Age: 39 Year
  Sex: Female

DRUGS (20)
  1. RHEUMATREX [Suspect]
     Route: 048
     Dates: start: 20111130, end: 20111201
  2. PREDNISOLONE [Concomitant]
     Dosage: 25 MG DAILY
     Dates: start: 20120418, end: 20120101
  3. PREDNISOLONE [Concomitant]
     Dosage: 20 MG DAILY
     Dates: start: 20120501, end: 20120501
  4. RHEUMATREX [Suspect]
     Indication: RHEUMATOID ARTHRITIS
     Route: 048
     Dates: start: 20120111, end: 20120301
  5. RHEUMATREX [Suspect]
     Route: 048
     Dates: start: 20111214, end: 20111201
  6. RHEUMATREX [Suspect]
     Route: 048
     Dates: start: 20111116, end: 20111101
  7. PREDNISOLONE [Concomitant]
     Dosage: 60 MG DAILY
     Dates: start: 20120325, end: 20120301
  8. PREDNISOLONE [Concomitant]
     Dosage: 40 MG DAILY
     Dates: start: 20120330, end: 20120101
  9. LOXOPROFEN SODIUM HYDRATE [Concomitant]
     Dosage: DAILY DOSE: 120 MG
     Dates: start: 20120110
  10. RHEUMATREX [Suspect]
     Route: 048
     Dates: start: 20111228, end: 20120101
  11. PREDNISOLONE [Concomitant]
     Dosage: 30 MG DAILY
     Dates: start: 20120406, end: 20120401
  12. PREDNISOLONE [Concomitant]
     Dosage: 15 MG DAILY
     Dates: start: 20120515, end: 20120101
  13. PREDNISOLONE [Concomitant]
     Dosage: 12.5 MG DAILY
     Dates: start: 20120605
  14. TEPRENONE [Concomitant]
     Dosage: DAILY DOSE: 100 MG
     Dates: start: 20120110
  15. CIMZIA [Suspect]
     Indication: RHEUMATOID ARTHRITIS
     Route: 058
     Dates: start: 20111115, end: 20120322
  16. FOLIC ACID [Concomitant]
     Dates: start: 20111230
  17. LANSOPRAZOLE [Concomitant]
     Dosage: DAILY DOSE: 15 MG
     Dates: start: 20111129
  18. ALFACALCIDOL [Concomitant]
     Dosage: DAILY DOSE: 1 MCG
     Dates: start: 20111228
  19. PREDNISOLONE [Concomitant]
     Dosage: DAILY DOSE: 5 MG
     Dates: start: 20120209, end: 20120101
  20. LEVOTHYROXINE SODIUM HYDRATE [Concomitant]
     Dosage: DAILY DOSE:100 MCG
     Dates: start: 20110131

REACTIONS (1)
  - INTERSTITIAL LUNG DISEASE [None]
